FAERS Safety Report 7427913-0 (Version None)
Quarter: 2011Q2

REPORT INFORMATION
  Report Type: 
  Country: None (occurrence: None)
  Receive Date: 20110421
  Receipt Date: 20110314
  Transmission Date: 20111010
  Serious: Yes (Other)
  Sender: FDA-Public Use
  Company Number: US-BAYER-201030157NA

PATIENT
  Age: 20 Year
  Sex: Female

DRUGS (13)
  1. EFFEXOR XR [Concomitant]
     Dosage: 150 MG, UNK
     Route: 048
     Dates: start: 20041214
  2. PREDNISONE [Concomitant]
     Dosage: 50 MG, UNK
     Route: 048
     Dates: start: 20070716
  3. METRONIDAZOLE [Concomitant]
     Dosage: 75 %, UNK
     Route: 067
     Dates: start: 20070705
  4. AMITRIPTYLINE HCL [Concomitant]
     Dosage: 25 MG, UNK
     Route: 048
     Dates: start: 20061110
  5. EFFEXOR XR [Concomitant]
     Dosage: 75 MG, UNK
     Route: 048
     Dates: start: 20060119
  6. CIPROFLOXACIN HCL [Concomitant]
     Dosage: 500 MG, UNK
     Route: 048
     Dates: start: 20070528
  7. YASMIN [Suspect]
     Indication: ORAL CONTRACEPTION
     Route: 048
     Dates: start: 20050101, end: 20090615
  8. PHENAZOPYRIDINE HCL TAB [Concomitant]
     Dosage: 200 MG, UNK
     Route: 048
     Dates: start: 20061205
  9. ZYRTEC [Concomitant]
     Dosage: 10 MG, UNK
     Route: 048
     Dates: start: 20070528
  10. OCELLA [Suspect]
     Indication: ORAL CONTRACEPTION
     Route: 048
     Dates: start: 20050101, end: 20090615
  11. SULFAMETHOXAZOLE AND TRIMETHOPRIM DOUBLE STRENGTH [Concomitant]
     Dosage: UNK
     Route: 048
     Dates: start: 20061205
  12. MAXALT [Concomitant]
     Dosage: 10 MG, UNK
     Route: 048
     Dates: start: 20070205
  13. BENZONATATE [Concomitant]
     Dosage: 200 MG, UNK
     Route: 048
     Dates: start: 20070524

REACTIONS (2)
  - GALLBLADDER DISORDER [None]
  - BILIARY DYSKINESIA [None]
